FAERS Safety Report 6115542-0 (Version None)
Quarter: 2009Q1

REPORT INFORMATION
  Report Type: 
  Country: None (occurrence: None)
  Receive Date: 20090313
  Receipt Date: 20090303
  Transmission Date: 20090719
  Serious: Yes (Hospitalization)
  Sender: FDA-Public Use
  Company Number: DE-ELI_LILLY_AND_COMPANY-DE200903001170

PATIENT
  Age: 69 Year
  Sex: Female

DRUGS (17)
  1. ZYPREXA [Suspect]
     Indication: BIPOLAR DISORDER
     Dosage: 15 MG, DAILY (1/D)
     Route: 048
     Dates: end: 20080909
  2. ZYPREXA [Suspect]
     Dosage: 5 MG, DAILY (1/D)
     Route: 048
     Dates: start: 20080910, end: 20080928
  3. REMERGIL [Concomitant]
     Dosage: 15 MG, DAILY (1/D)
     Route: 048
     Dates: start: 20080923, end: 20080924
  4. REMERGIL [Concomitant]
     Dosage: 30 MG, DAILY (1/D)
     Route: 048
     Dates: start: 20080925, end: 20080927
  5. REMERGIL [Concomitant]
     Dosage: 45 MG, DAILY (1/D)
     Route: 048
     Dates: start: 20080928
  6. MELPERON [Concomitant]
     Dosage: 20 MG, DAILY (1/D)
     Route: 048
     Dates: start: 20080923, end: 20080924
  7. MELPERON [Concomitant]
     Dosage: 175 MG, DAILY (1/D)
     Route: 048
     Dates: start: 20080925, end: 20080928
  8. MELPERON [Concomitant]
     Dosage: 100 MG, DAILY (1/D)
     Route: 048
     Dates: start: 20080929, end: 20080929
  9. MELPERON [Concomitant]
     Dosage: 75 MG, DAILY (1/D)
     Route: 048
     Dates: start: 20080930, end: 20080930
  10. MELPERON [Concomitant]
     Dosage: 50 MG, DAILY (1/D)
     Route: 048
     Dates: start: 20081001, end: 20081001
  11. MELPERON [Concomitant]
     Dosage: 25 MG, DAILY (1/D)
     Route: 048
     Dates: start: 20081002, end: 20081002
  12. LEVOTHYROXINE SODIUM [Concomitant]
     Indication: THYROID DISORDER
     Dosage: 0.15 MG, DAILY (1/D)
     Route: 048
     Dates: start: 20080101, end: 20080926
  13. LEVOTHYROXINE SODIUM [Concomitant]
     Dosage: 0.125 MG, DAILY (1/D)
     Route: 048
     Dates: start: 20080927
  14. RAMIPRIL [Concomitant]
     Dosage: 5 MG, DAILY (1/D)
     Route: 048
  15. BISOPROLOL [Concomitant]
     Dosage: 5 MG, DAILY (1/D)
     Route: 048
  16. SIMVASTATIN [Concomitant]
     Indication: HYPERLIPIDAEMIA
     Dosage: 5 MG, DAILY (1/D)
     Route: 048
  17. EXELON [Concomitant]
     Dosage: 6 MG, DAILY (1/D)
     Route: 048
     Dates: start: 20020101

REACTIONS (3)
  - AKATHISIA [None]
  - HOSPITALISATION [None]
  - MEMORY IMPAIRMENT [None]
